FAERS Safety Report 15776743 (Version 1)
Quarter: 2018Q4

REPORT INFORMATION
  Report Type: Spontaneous
  Country: US (occurrence: US)
  Receive Date: 20181226
  Receipt Date: 20181226
  Transmission Date: 20190205
  Serious: No
  Sender: FDA-Public Use
  Company Number: None

PATIENT
  Sex: Female

DRUGS (2)
  1. LOSARTAN AND HYDROCHLOROTHIAZIDE [Suspect]
     Active Substance: HYDROCHLOROTHIAZIDE\LOSARTAN POTASSIUM
  2. LOSARTAN. [Suspect]
     Active Substance: LOSARTAN

REACTIONS (3)
  - Wrong product administered [None]
  - Dementia [None]
  - Product dispensing error [None]

NARRATIVE: CASE EVENT DATE: 2018
